FAERS Safety Report 6011625-4 (Version None)
Quarter: 2008Q4

REPORT INFORMATION
  Report Type: 
  Country: None (occurrence: None)
  Receive Date: 20081218
  Receipt Date: 19860520
  Transmission Date: 20090506
  Serious: Yes (Death, Other)
  Sender: FDA-Public Use
  Company Number: ZA-ROCHE-860150004001

PATIENT
  Age: 66 Year
  Sex: Female

DRUGS (4)
  1. INTERFERON ALFA-2A [Suspect]
     Indication: MULTIPLE MYELOMA
     Dosage: CUMULATIVE DOSE: 127 IU
     Route: 058
     Dates: start: 19850401, end: 19850521
  2. ENDOXAN [Concomitant]
     Indication: MULTIPLE MYELOMA
     Dates: end: 19850317
  3. VINCRISTINE [Concomitant]
     Indication: MULTIPLE MYELOMA
     Dates: end: 19850317
  4. MITHRAMYCIN [Concomitant]
     Indication: HYPERCALCAEMIA
     Dates: start: 19850613

REACTIONS (9)
  - ANAEMIA [None]
  - ANOREXIA [None]
  - ELECTROCARDIOGRAM CHANGE [None]
  - HYPERCALCAEMIA [None]
  - LEUKOPENIA [None]
  - MULTIPLE MYELOMA [None]
  - MYOCARDIAL INFARCTION [None]
  - NEUTROPENIA [None]
  - TACHYCARDIA [None]
